FAERS Safety Report 24153541 (Version 1)
Quarter: 2024Q3

REPORT INFORMATION
  Report Type: Spontaneous
  Country: US (occurrence: None)
  Receive Date: 20240730
  Receipt Date: 20240730
  Transmission Date: 20241017
  Serious: Yes (unspecified)
  Sender: Public
  Company Number: None

PATIENT
  Age: 57 Year
  Sex: Female
  Weight: 46.35 kg

DRUGS (4)
  1. LIDOCAINE 4% [Suspect]
     Active Substance: LIDOCAINE
     Indication: Pain management
  2. WELLBUTRIN [Concomitant]
     Active Substance: BUPROPION HYDROCHLORIDE
  3. TYLENOL [Concomitant]
     Active Substance: ACETAMINOPHEN
  4. MOTRIN [Concomitant]
     Active Substance: IBUPROFEN

REACTIONS (8)
  - Drug ineffective [None]
  - Pain [None]
  - Application site pruritus [None]
  - Application site pain [None]
  - Blister [None]
  - Rash erythematous [None]
  - Dry skin [None]
  - Application site erythema [None]

NARRATIVE: CASE EVENT DATE: 20240718
